FAERS Safety Report 23803001 (Version 1)
Quarter: 2024Q2

REPORT INFORMATION
  Report Type: Spontaneous
  Country: US (occurrence: None)
  Receive Date: 20240501
  Receipt Date: 20240501
  Transmission Date: 20240715
  Serious: No
  Sender: FDA-Public Use
  Company Number: US-Axsome Therapeutics, Inc.-AXS202304-000584

PATIENT
  Age: 20 Year
  Sex: Female

DRUGS (2)
  1. SUNOSI [Suspect]
     Active Substance: SOLRIAMFETOL
     Indication: Somnolence
     Route: 048
     Dates: start: 202303
  2. SUNOSI [Suspect]
     Active Substance: SOLRIAMFETOL
     Indication: Narcolepsy

REACTIONS (2)
  - Anxiety [Unknown]
  - Palpitations [Unknown]

NARRATIVE: CASE EVENT DATE: 20230101
